APPROVED DRUG PRODUCT: LOTEPREDNOL ETABONATE
Active Ingredient: LOTEPREDNOL ETABONATE
Strength: 0.5%
Dosage Form/Route: SUSPENSION/DROPS;OPHTHALMIC
Application: A212450 | Product #001 | TE Code: AB
Applicant: SUN PHARMACEUTICAL INDUSTRIES LTD
Approved: Feb 26, 2021 | RLD: No | RS: No | Type: RX